FAERS Safety Report 15634622 (Version 1)
Quarter: 2018Q4

REPORT INFORMATION
  Report Type: Spontaneous
  Country: US (occurrence: US)
  Receive Date: 20181119
  Receipt Date: 20181119
  Transmission Date: 20190205
  Serious: Yes (Life-Threatening, Hospitalization, Other)
  Sender: FDA-Public Use
  Company Number: PHEH2018US048620

PATIENT
  Age: 16 Year
  Sex: Male
  Weight: 101 kg

DRUGS (1)
  1. KYMRIAH [Suspect]
     Active Substance: TISAGENLECLEUCEL
     Indication: ACUTE LYMPHOCYTIC LEUKAEMIA RECURRENT
     Route: 042
     Dates: start: 20180904, end: 20180904

REACTIONS (24)
  - Confusional state [Recovered/Resolved]
  - Status epilepticus [Unknown]
  - Conjunctival haemorrhage [Unknown]
  - Malignant neoplasm progression [Not Recovered/Not Resolved]
  - Activated partial thromboplastin time prolonged [Recovered/Resolved]
  - Blood fibrinogen decreased [Recovered/Resolved]
  - Incontinence [Recovered/Resolved]
  - Tachycardia [Recovered/Resolved]
  - Fibrin D dimer increased [Recovered/Resolved]
  - Disorientation [Recovered/Resolved]
  - Lethargy [Recovered/Resolved]
  - Sleep disorder [Unknown]
  - Fluid overload [Unknown]
  - Acute lymphocytic leukaemia recurrent [Not Recovered/Not Resolved]
  - Pyrexia [Recovered/Resolved]
  - Hypotension [Recovered/Resolved]
  - International normalised ratio increased [Recovered/Resolved]
  - Neurotoxicity [Recovered/Resolved]
  - Aphasia [Recovered/Resolved]
  - Cytokine release syndrome [Recovered/Resolved]
  - Mental disorder [Unknown]
  - Petechiae [Unknown]
  - Amnesia [Recovered/Resolved]
  - Coagulopathy [Recovered/Resolved]

NARRATIVE: CASE EVENT DATE: 20180905
